FAERS Safety Report 21385784 (Version 1)
Quarter: 2022Q3

REPORT INFORMATION
  Report Type: Spontaneous
  Country: DE (occurrence: DE)
  Receive Date: 20220928
  Receipt Date: 20220928
  Transmission Date: 20221027
  Serious: Yes (Hospitalization, Other)
  Sender: FDA-Public Use
  Company Number: DE-ADRED-05723-01

PATIENT
  Age: 76 Year
  Sex: Male
  Weight: 80.5 kg

DRUGS (13)
  1. METOPROLOL [Suspect]
     Active Substance: METOPROLOL
     Indication: Product used for unknown indication
     Dosage: 95 MILLIGRAM DAILY; 47.5 MG, 1-0-1-0,
     Route: 065
  2. CANDESARTAN [Suspect]
     Active Substance: CANDESARTAN
     Indication: Product used for unknown indication
     Dosage: 32 MILLIGRAM DAILY; 16 MG, 1-0-1-0,
     Route: 065
  3. RAMIPRIL [Suspect]
     Active Substance: RAMIPRIL
     Indication: Product used for unknown indication
     Dosage: 5 MILLIGRAM DAILY; 5 MG, 1-0-0-0,
     Route: 065
  4. METFORMIN [Suspect]
     Active Substance: METFORMIN HYDROCHLORIDE
     Indication: Product used for unknown indication
     Dosage: 1700 MILLIGRAM DAILY; 850 MG, 1-0-1-0,
     Route: 065
  5. IBUPROFEN [Suspect]
     Active Substance: IBUPROFEN
     Indication: Product used for unknown indication
     Dosage: 600 MG, REQUIREMENT
     Route: 065
  6. SITAGLIPTIN [Suspect]
     Active Substance: SITAGLIPTIN
     Indication: Product used for unknown indication
     Dosage: 100 MILLIGRAM DAILY; 50 MG, 1-0-1-0,
     Route: 065
  7. MEMANTINE [Concomitant]
     Active Substance: MEMANTINE
     Indication: Product used for unknown indication
     Dosage: 20 MILLIGRAM DAILY; 20 MG, 1-0-0-0,
  8. SIMVASTATIN [Concomitant]
     Active Substance: SIMVASTATIN
     Indication: Product used for unknown indication
     Dosage: 40 MILLIGRAM DAILY; 40 MG, 0-0-1-0,
  9. LEVOTHYROXINE SODIUM [Concomitant]
     Active Substance: LEVOTHYROXINE SODIUM
     Indication: Product used for unknown indication
     Dosage: 1.5 DOSAGE FORMS DAILY; 25 UG, 1.5-0-0-0,
  10. POTASSIUM CITRATE [Concomitant]
     Active Substance: POTASSIUM CITRATE
     Indication: Product used for unknown indication
     Dosage: 2157.3 MILLIGRAM DAILY; 2157.3 MG, 1-0-0-0,
  11. NIFEDIPINE [Concomitant]
     Active Substance: NIFEDIPINE
     Indication: Product used for unknown indication
     Dosage: 4 DOSAGE FORMS DAILY; 20 MG, 2-0-2-0, EXTENDED-RELEASE TABLETS
  12. PANTOPRAZOLE SODIUM [Concomitant]
     Active Substance: PANTOPRAZOLE SODIUM
     Indication: Product used for unknown indication
     Dosage: 20 MILLIGRAM DAILY; 20 MG, 1-0-0-0, EXTENDED-RELEASE TABLETS
  13. ASPIRIN [Concomitant]
     Active Substance: ASPIRIN
     Indication: Product used for unknown indication
     Dosage: 100 MILLIGRAM DAILY; 100 MG, 1-0-0-0,

REACTIONS (8)
  - Dysuria [Unknown]
  - Acute kidney injury [Unknown]
  - Eye swelling [Unknown]
  - Pain [Unknown]
  - Atrioventricular block [Unknown]
  - Oedema peripheral [Unknown]
  - Cardiac failure [Unknown]
  - Condition aggravated [Unknown]
